FAERS Safety Report 9432349 (Version 1)
Quarter: 2013Q3

REPORT INFORMATION
  Report Type: Spontaneous
  Country: US (occurrence: None)
  Receive Date: 20130730
  Receipt Date: 20130730
  Transmission Date: 20140515
  Serious: Yes (Other)
  Sender: FDA-Public Use
  Company Number: None

PATIENT
  Age: 72 Year
  Sex: Female
  Weight: 47.63 kg

DRUGS (1)
  1. TRAMADOL HCL [Suspect]
     Indication: SCIATICA
     Route: 048
     Dates: start: 20130626, end: 20130628

REACTIONS (5)
  - Dysphonia [None]
  - Hallucination [None]
  - Abnormal dreams [None]
  - Dizziness [None]
  - Weight increased [None]
